FAERS Safety Report 20447273 (Version 2)
Quarter: 2022Q1

REPORT INFORMATION
  Report Type: Report from Study
  Country: US (occurrence: US)
  Receive Date: 20220209
  Receipt Date: 20220221
  Transmission Date: 20220423
  Serious: Yes (Other)
  Sender: FDA-Public Use
  Company Number: US-MTPC-MTDA2022-0002901

PATIENT
  Age: 75 Year
  Sex: Male

DRUGS (2)
  1. EDARAVONE [Suspect]
     Active Substance: EDARAVONE
     Indication: Amyotrophic lateral sclerosis
     Dosage: STANDARD DOSING - 14 DAY REGIMEN
     Route: 065
     Dates: start: 20220124, end: 20220131
  2. RILUZOLE [Suspect]
     Active Substance: RILUZOLE
     Indication: Product used for unknown indication
     Dosage: 50 MILLIGRAM
     Route: 065

REACTIONS (7)
  - Loss of consciousness [Unknown]
  - Headache [Unknown]
  - Malaise [Unknown]
  - Dizziness [Unknown]
  - Hyperhidrosis [Unknown]
  - Hypotonia [Unknown]
  - Nausea [Unknown]

NARRATIVE: CASE EVENT DATE: 20220131
